FAERS Safety Report 6882027-3 (Version None)
Quarter: 2010Q3

REPORT INFORMATION
  Report Type: 
  Country: None (occurrence: None)
  Receive Date: 20100729
  Receipt Date: 20100709
  Transmission Date: 20110219
  Serious: No
  Sender: FDA-Public Use
  Company Number: US-B.I. PHARMACEUTICALS,INC./RIDGEFIELD-2010-BP-07909BP

PATIENT
  Sex: Male

DRUGS (6)
  1. SPIRIVA [Suspect]
     Indication: CHRONIC OBSTRUCTIVE PULMONARY DISEASE
     Dosage: 18 MCG
     Route: 055
     Dates: start: 20100608
  2. NIASPAN [Concomitant]
     Indication: CARDIAC DISORDER
     Dosage: 500 MG
  3. CARVEDILOL [Concomitant]
     Indication: CARDIAC DISORDER
     Dosage: 12.5 MG
  4. SIMVASTATIN [Concomitant]
     Indication: BLOOD CHOLESTEROL INCREASED
     Dosage: 80 MG
  5. FORTEO [Concomitant]
     Dosage: 600 MG
  6. VITAMIN D [Concomitant]
     Dosage: 50,000U Q WEEK

REACTIONS (6)
  - BLOOD URINE PRESENT [None]
  - CYSTITIS [None]
  - DYSURIA [None]
  - HEADACHE [None]
  - PROSTATITIS [None]
  - PYREXIA [None]
